FAERS Safety Report 10152966 (Version 2)
Quarter: 2014Q2

REPORT INFORMATION
  Report Type: Spontaneous
  Country: BR (occurrence: BR)
  Receive Date: 20140505
  Receipt Date: 20140515
  Transmission Date: 20141212
  Serious: Yes (Other)
  Sender: FDA-Public Use
  Company Number: PHHY2014BR044874

PATIENT
  Sex: Male
  Weight: 77 kg

DRUGS (9)
  1. DIOVAN HCT [Suspect]
     Indication: HYPERTENSION
     Dosage: UNK UKN, DAILY
  2. DIOVAN HCT [Suspect]
     Dosage: 1 DF (320 MG VALS+12.5 MG HCT), DAILY
     Route: 048
     Dates: start: 20140404
  3. METFORMIN [Suspect]
     Indication: DIABETES MELLITUS
     Dosage: UNK UKN, UNK
  4. ATACAND [Suspect]
     Indication: HYPERTENSION
     Dosage: 16 MG, DAILY
     Dates: end: 20140403
  5. ANGIPRESS CD [Suspect]
     Dosage: 1 DF (50 MG ATEN/12 MG CHLO), DAILY
  6. INSULIN [Suspect]
     Indication: DIABETES MELLITUS
     Dosage: THRICE DAILY
  7. OMEPRAZOLE [Concomitant]
     Indication: PROPHYLAXIS
     Dosage: UNK UKN, UNK
  8. ASPIRINA PREVENT [Concomitant]
     Dosage: UNK UKN, UNK
     Route: 048
  9. LIPANON [Concomitant]
     Indication: BLOOD TRIGLYCERIDES INCREASED
     Dosage: UNK UKN, DAILY
     Route: 048
     Dates: start: 201403

REACTIONS (3)
  - Blood pressure increased [Unknown]
  - Blood pressure inadequately controlled [Unknown]
  - Drug ineffective [Unknown]
